FAERS Safety Report 23140687 (Version 1)
Quarter: 2023Q4

REPORT INFORMATION
  Report Type: Report from Study
  Country: BR (occurrence: BR)
  Receive Date: 20231103
  Receipt Date: 20231103
  Transmission Date: 20240110
  Serious: Yes (Other)
  Sender: FDA-Public Use
  Company Number: BR-BoehringerIngelheim-2023-BI-267320

PATIENT
  Sex: Female
  Weight: 67 kg

DRUGS (3)
  1. JARDIANCE [Suspect]
     Active Substance: EMPAGLIFLOZIN
     Indication: Diabetes mellitus
     Route: 048
  2. JARDIANCE [Suspect]
     Active Substance: EMPAGLIFLOZIN
     Dosage: TWO TABLETS PER DAY, ONE IN THE MORNING AND ONE AT NIGHT.
     Route: 048
  3. Olmesartana Medoxomila + Hidroclorotiazida [Concomitant]
     Indication: Hypertension
     Dosage: 1 TABLET OF 20/12.5MG A DAY, ORALLY, IN THE MORNING
     Route: 048

REACTIONS (5)
  - Weight decreased [Not Recovered/Not Resolved]
  - Off label use [Unknown]
  - Somnolence [Recovered/Resolved]
  - Blood glucose decreased [Recovered/Resolved]
  - Decreased appetite [Unknown]
